FAERS Safety Report 8507867-6 (Version None)
Quarter: 2012Q3

REPORT INFORMATION
  Report Type: 
  Country: None (occurrence: None)
  Receive Date: 20120713
  Receipt Date: 20120709
  Transmission Date: 20120928
  Serious: Yes (Hospitalization, Other)
  Sender: FDA-Public Use
  Company Number: PHHY2012IT058062

PATIENT
  Sex: Male

DRUGS (21)
  1. VALSARTAN [Suspect]
     Indication: HYPERTENSION
     Dosage: 1 DF, DAILY (80 MG)
     Dates: start: 20120501, end: 20120625
  2. ALDACTONE [Suspect]
     Indication: HYPERTENSION
     Dosage: 1 DF, DAILY
     Route: 048
     Dates: start: 20120101, end: 20120625
  3. ASPIRIN [Concomitant]
  4. LEVOTHYROXINE SODIUM [Concomitant]
  5. CRESTOR [Concomitant]
  6. LANTUS [Concomitant]
  7. RAMIPRIL [Concomitant]
  8. SYMBICORT [Concomitant]
  9. RANEXA [Concomitant]
  10. MINITRAN [Concomitant]
  11. BISOPROLOL FUMARATE [Concomitant]
  12. NEXIUM [Concomitant]
  13. PLAVIX [Concomitant]
     Route: 048
  14. MAGNESIUM HYDROXIDE TAB [Concomitant]
  15. HUMALOG [Concomitant]
  16. LASIX [Concomitant]
  17. SPIRIVA [Concomitant]
  18. POTASSIUM CHLORIDE [Suspect]
     Indication: HYPOKALAEMIA
     Dosage: 2 DF, DAILY
     Route: 048
     Dates: start: 20120501, end: 20120625
  19. CORDARONE [Concomitant]
  20. DIFIX [Concomitant]
  21. ARANESP [Concomitant]

REACTIONS (3)
  - HYPERKALAEMIA [None]
  - ELECTROCARDIOGRAM REPOLARISATION ABNORMALITY [None]
  - BUNDLE BRANCH BLOCK LEFT [None]
